FAERS Safety Report 19868356 (Version 1)
Quarter: 2021Q3

REPORT INFORMATION
  Report Type: Report from Study
  Country: US (occurrence: US)
  Receive Date: 20210921
  Receipt Date: 20210921
  Transmission Date: 20211014
  Serious: Yes (Other)
  Sender: FDA-Public Use
  Company Number: US-SA-2017SA214117

PATIENT
  Age: 61 Year
  Sex: Female

DRUGS (1)
  1. TERIFLUNOMIDE. [Suspect]
     Active Substance: TERIFLUNOMIDE
     Indication: MULTIPLE SCLEROSIS
     Dosage: 14 MG,QD
     Route: 048
     Dates: start: 20170907

REACTIONS (6)
  - Hyperlipidaemia [Unknown]
  - Chondrosarcoma [Unknown]
  - Alopecia [Not Recovered/Not Resolved]
  - Pruritus [Recovering/Resolving]
  - Bone cancer [Unknown]
  - Essential hypertension [Unknown]

NARRATIVE: CASE EVENT DATE: 201709
